FAERS Safety Report 9863550 (Version 2)
Quarter: 2014Q1

REPORT INFORMATION
  Report Type: Spontaneous
  Country: US (occurrence: US)
  Receive Date: 20140203
  Receipt Date: 20140203
  Transmission Date: 20141002
  Serious: Yes (Hospitalization)
  Sender: FDA-Public Use
  Company Number: US-B.I. PHARMACEUTICALS,INC./RIDGEFIELD-2014-BI-00452BP

PATIENT
  Age: 58 Year
  Sex: Male
  Weight: 91.17 kg

DRUGS (1)
  1. PRADAXA [Suspect]
     Indication: ANTICOAGULANT THERAPY
     Dates: start: 20120312, end: 20120511

REACTIONS (2)
  - Haemorrhagic stroke [Unknown]
  - Cerebral haemorrhage [Unknown]
